FAERS Safety Report 6176536-2 (Version None)
Quarter: 2009Q2

REPORT INFORMATION
  Report Type: 
  Country: None (occurrence: None)
  Receive Date: 20090501
  Receipt Date: 20090423
  Transmission Date: 20091009
  Serious: Yes (Hospitalization)
  Sender: FDA-Public Use
  Company Number: CO-ELI_LILLY_AND_COMPANY-CO200904005939

PATIENT
  Age: 16 Year
  Sex: Female

DRUGS (1)
  1. FORTEO [Suspect]
     Dosage: UNK, UNKNOWN
     Route: 065
     Dates: end: 20090413

REACTIONS (3)
  - HEADACHE [None]
  - MUSCLE SPASMS [None]
  - WITHDRAWAL SYNDROME [None]
